FAERS Safety Report 7978968-6 (Version None)
Quarter: 2011Q4

REPORT INFORMATION
  Report Type: 
  Country: None (occurrence: None)
  Receive Date: 20111214
  Receipt Date: 20111207
  Transmission Date: 20120403
  Serious: Yes (Disabling)
  Sender: FDA-Public Use
  Company Number: US-SANOFI-AVENTIS-2011SA080603

PATIENT
  Age: 64 Year
  Sex: Male
  Weight: 82 kg

DRUGS (2)
  1. CHLORPROMAZINE [Concomitant]
  2. PHISOHEX [Suspect]
     Dates: start: 19700101, end: 19710101

REACTIONS (1)
  - NERVOUS SYSTEM DISORDER [None]
